FAERS Safety Report 4736576-4 (Version None)
Quarter: 2005Q3

REPORT INFORMATION
  Report Type: 
  Country: None (occurrence: None)
  Receive Date: 20050804
  Receipt Date: 20050804
  Transmission Date: 20060218
  Serious: Yes (Other)
  Sender: FDA-Public Use
  Company Number: None

PATIENT
  Age: 50 Year
  Sex: Male
  Weight: 81.6475 kg

DRUGS (1)
  1. NITROGLYCERIN 0.2% OINTMENT (GROUPHEALTH COOP. COMPOUNDED ITEM) [Suspect]
     Indication: ANAL FISSURE
     Dosage: 1/2 INCH PER RECTAL 3 TO 4 TIMES DAILY
     Route: 054
     Dates: start: 20050711

REACTIONS (2)
  - DRUG PRESCRIBING ERROR [None]
  - MEDICATION ERROR [None]
